FAERS Safety Report 11144605 (Version 1)
Quarter: 2015Q2

REPORT INFORMATION
  Report Type: Spontaneous
  Country: BR (occurrence: BR)
  Receive Date: 20150528
  Receipt Date: 20150528
  Transmission Date: 20150821
  Serious: Yes (Hospitalization)
  Sender: FDA-Public Use
  Company Number: BR-PFIZER INC-2015173390

PATIENT
  Age: 64 Year
  Sex: Male
  Weight: 115 kg

DRUGS (1)
  1. VIAGRA [Suspect]
     Active Substance: SILDENAFIL CITRATE
     Dosage: 50 MG, UNK
     Route: 048
     Dates: start: 2011, end: 2014

REACTIONS (1)
  - Mass [Unknown]

NARRATIVE: CASE EVENT DATE: 2014
